FAERS Safety Report 16006542 (Version 1)
Quarter: 2019Q1

REPORT INFORMATION
  Report Type: Spontaneous
  Country: US (occurrence: US)
  Receive Date: 20190225
  Receipt Date: 20190225
  Transmission Date: 20190418
  Serious: Yes (Other)
  Sender: FDA-Public Use
  Company Number: PHEH2019US008451

PATIENT
  Age: 56 Year
  Sex: Female

DRUGS (1)
  1. TASIGNA [Suspect]
     Active Substance: NILOTINIB
     Indication: CHRONIC MYELOID LEUKAEMIA
     Dosage: UNK UNK, BID
     Route: 048
     Dates: start: 201407

REACTIONS (14)
  - Depression [Unknown]
  - Myalgia [Unknown]
  - Vitamin D deficiency [Unknown]
  - Restless legs syndrome [Unknown]
  - Anxiety [Unknown]
  - Type 2 diabetes mellitus [Unknown]
  - Vitreous floaters [Unknown]
  - Skin lesion [Unknown]
  - Essential hypertension [Unknown]
  - Pain in extremity [Unknown]
  - Pneumonia [Unknown]
  - Nasal congestion [Unknown]
  - Back pain [Unknown]
  - Cough [Unknown]

NARRATIVE: CASE EVENT DATE: 201607
